FAERS Safety Report 10897462 (Version 1)
Quarter: 2015Q1

REPORT INFORMATION
  Report Type: Report from Study
  Country: US (occurrence: US)
  Receive Date: 20150309
  Receipt Date: 20150309
  Transmission Date: 20150721
  Serious: Yes (Other)
  Sender: FDA-Public Use
  Company Number: US-ASTELLAS-2015US007254

PATIENT

DRUGS (1)
  1. ERLOTINIB [Suspect]
     Active Substance: ERLOTINIB
     Indication: NON-SMALL CELL LUNG CANCER
     Dosage: UNK, ONCE DAILY (FOR 28 DAYS)
     Route: 048

REACTIONS (16)
  - Hypomagnesaemia [Not Recovered/Not Resolved]
  - Headache [Recovered/Resolved]
  - Skin ulcer [Not Recovered/Not Resolved]
  - Hyponatraemia [Recovered/Resolved]
  - Hyperglycaemia [Recovered/Resolved]
  - Nausea [Recovered/Resolved]
  - Rash [Recovered/Resolved]
  - Ulcer [Recovered/Resolved]
  - Hyponatraemia [Recovered/Resolved]
  - Exfoliative rash [Not Recovered/Not Resolved]
  - Acne [Recovered/Resolved]
  - Soft tissue infection [Recovered/Resolved]
  - Lymphopenia [Recovered/Resolved]
  - Vomiting [Recovered/Resolved]
  - Pyrexia [Recovered/Resolved]
  - Pruritus [Recovered/Resolved]

NARRATIVE: CASE EVENT DATE: 20081114
